FAERS Safety Report 5033452-7 (Version None)
Quarter: 2006Q2

REPORT INFORMATION
  Report Type: 
  Country: None (occurrence: None)
  Receive Date: 20060621
  Receipt Date: 20060609
  Transmission Date: 20061013
  Serious: Yes (Death, Other)
  Sender: FDA-Public Use
  Company Number: USA-2006-0024453

PATIENT
  Age: 49 Year
  Sex: Female
  Weight: 72.6 kg

DRUGS (6)
  1. OXYCODONE HCL [Suspect]
     Dosage: UNK
     Route: 065
  2. OXYMORPHONE (OXYMORPHONE) [Suspect]
     Dosage: UNK
     Route: 065
  3. HYDROCODONE BITARTRATE [Suspect]
     Dosage: UNK
     Route: 065
  4. ACETAMINOPHEN [Suspect]
     Dosage: UNK
     Route: 065
  5. AMITRIPTYLINE HCL [Suspect]
     Dosage: UNK
     Route: 065
  6. VENLAFAXINE HCL [Suspect]
     Dosage: UNK
     Route: 065

REACTIONS (14)
  - ARTERIOSCLEROSIS CORONARY ARTERY [None]
  - ASTHMA [None]
  - BRAIN OEDEMA [None]
  - CARDIAC DISORDER [None]
  - CARDIOMEGALY [None]
  - COMPLETED SUICIDE [None]
  - DEPRESSION [None]
  - DRUG DEPENDENCE [None]
  - DRUG TOXICITY [None]
  - EMPHYSEMA [None]
  - HAEMORRHAGE SUBCUTANEOUS [None]
  - MULTIPLE DRUG OVERDOSE INTENTIONAL [None]
  - PARANOIA [None]
  - PULMONARY OEDEMA [None]
